FAERS Safety Report 21950460 (Version 6)
Quarter: 2023Q1

REPORT INFORMATION
  Report Type: Report from Study
  Country: JP (occurrence: JP)
  Receive Date: 20230203
  Receipt Date: 20230301
  Transmission Date: 20230417
  Serious: Yes (Death, Hospitalization)
  Sender: FDA-Public Use
  Company Number: JP-ABBVIE-20K-087-3306252-00

PATIENT
  Age: 72 Year
  Sex: Male
  Weight: 49 kg

DRUGS (4)
  1. CARBIDOPA\LEVODOPA [Suspect]
     Active Substance: CARBIDOPA\LEVODOPA
     Indication: Parkinson^s disease
     Dosage: MD : 8 ML. CD : 2.5 ML/HR ? 16 HRS. ED : 1 ML/UNIT ? 3 TIMES
     Route: 050
     Dates: start: 20190516
  2. CARBIDOPA\LEVODOPA [Suspect]
     Active Substance: CARBIDOPA\LEVODOPA
     Dosage: MD : 8 ML. CD : 2.6 ML/HR ? 16 HRS. ED : 1 ML/UNIT ? 3 TIMES
     Route: 050
  3. CARBIDOPA\LEVODOPA [Suspect]
     Active Substance: CARBIDOPA\LEVODOPA
     Dosage: MD : 8 ML. CD : 2.7 ML/HR ? 16 HRS. ED : 1 ML/UNIT ? 3 TIMES
     Route: 050
  4. ZONISAMIDE [Concomitant]
     Active Substance: ZONISAMIDE
     Indication: Parkinson^s disease
     Route: 048

REACTIONS (7)
  - Pneumonia aspiration [Fatal]
  - Intestinal obstruction [Recovered/Resolved]
  - Ulcer [Unknown]
  - Vitamin B12 decreased [Recovered/Resolved]
  - Dyskinesia [Unknown]
  - Mobility decreased [Unknown]
  - Muscle rigidity [Not Recovered/Not Resolved]

NARRATIVE: CASE EVENT DATE: 20190701
